FAERS Safety Report 5372937-0 (Version None)
Quarter: 2007Q2

REPORT INFORMATION
  Report Type: 
  Country: None (occurrence: None)
  Receive Date: 20070621
  Receipt Date: 20070129
  Transmission Date: 20071010
  Serious: Yes (Other)
  Sender: FDA-Public Use
  Company Number: 33956

PATIENT
  Sex: Female

DRUGS (1)
  1. KETOROLAC TROMETHAMINE INJ USP 300MG/10ML - BEDFORD LABS, INC. [Suspect]
     Indication: FACIAL PAIN
     Dosage: 30 MG/IV/X1
     Dates: start: 20070215

REACTIONS (1)
  - PARAESTHESIA [None]
